FAERS Safety Report 9149262 (Version 1)
Quarter: 2013Q1

REPORT INFORMATION
  Report Type: Spontaneous
  Country: CO (occurrence: CO)
  Receive Date: 20130308
  Receipt Date: 20130308
  Transmission Date: 20140127
  Serious: Yes (Other)
  Sender: FDA-Public Use
  Company Number: CO-PFIZER INC-2013076437

PATIENT
  Age: 76 Year
  Sex: Female

DRUGS (2)
  1. XALATAN [Suspect]
     Indication: INTRAOCULAR PRESSURE INCREASED
     Dosage: UNK
     Dates: start: 2008
  2. VALTAN [Concomitant]
     Indication: HYPERTENSION
     Dosage: UNK
     Dates: start: 2009

REACTIONS (3)
  - Cataract [Unknown]
  - Arthropathy [Unknown]
  - Blood cholesterol increased [Unknown]
